FAERS Safety Report 24033994 (Version 1)
Quarter: 2024Q3

REPORT INFORMATION
  Report Type: Spontaneous
  Country: US (occurrence: US)
  Receive Date: 20240701
  Receipt Date: 20240701
  Transmission Date: 20241017
  Serious: Yes (Life-Threatening, Hospitalization, Other)
  Sender: ALEMBIC
  Company Number: US-ALEMBIC PHARMACUETICALS LIMITED-2024SCAL000912

PATIENT

DRUGS (1)
  1. BUPROPION HYDROCHLORIDE [Suspect]
     Active Substance: BUPROPION HYDROCHLORIDE
     Indication: Depression
     Dosage: UNK
     Route: 065

REACTIONS (11)
  - Brain injury [Recovering/Resolving]
  - Status epilepticus [Recovering/Resolving]
  - Electrocardiogram QT prolonged [Unknown]
  - Encephalopathy [Recovering/Resolving]
  - Suicide attempt [Unknown]
  - Electrocardiogram QRS complex prolonged [Unknown]
  - Cytotoxic oedema [Recovering/Resolving]
  - Hypotension [Unknown]
  - Pupil fixed [Unknown]
  - Intentional overdose [Unknown]
  - Metabolic disorder [Unknown]
